FAERS Safety Report 5510657-X (Version None)
Quarter: 2007Q4

REPORT INFORMATION
  Report Type: 
  Country: None (occurrence: None)
  Receive Date: 20071108
  Receipt Date: 20071029
  Transmission Date: 20080405
  Serious: No
  Sender: FDA-Public Use
  Company Number: US-BOEHRINGER INGELHEIM PHARMACEUTICALS, INC.-2007-BP-21757BP

PATIENT
  Sex: Female

DRUGS (4)
  1. ATROVENT HFA [Suspect]
     Indication: CHRONIC OBSTRUCTIVE PULMONARY DISEASE
     Route: 055
     Dates: start: 20050101
  2. PAXIL [Concomitant]
  3. VALIUM [Concomitant]
     Indication: SLEEP DISORDER
  4. SINGULAIR [Concomitant]

REACTIONS (2)
  - COUGH [None]
  - THROAT IRRITATION [None]
